FAERS Safety Report 6493896-3 (Version None)
Quarter: 2009Q4

REPORT INFORMATION
  Report Type: 
  Country: None (occurrence: None)
  Receive Date: 20091214
  Receipt Date: 20081118
  Transmission Date: 20100525
  Serious: No
  Sender: FDA-Public Use
  Company Number: US-BRISTOL-MYERS SQUIBB COMPANY-14411243

PATIENT
  Age: 34 Year
  Sex: Female
  Weight: 54 kg

DRUGS (4)
  1. ABILIFY [Suspect]
     Indication: DEPRESSION
     Dosage: SINGLE DAILY DOSE AT BED TIME
     Dates: end: 20081117
  2. ABILIFY [Suspect]
     Indication: POST-TRAUMATIC STRESS DISORDER
     Dosage: SINGLE DAILY DOSE AT BED TIME
     Dates: end: 20081117
  3. ABILIFY [Suspect]
     Indication: OBSESSIVE THOUGHTS
     Dosage: SINGLE DAILY DOSE AT BED TIME
     Dates: end: 20081117
  4. PROZAC [Concomitant]

REACTIONS (1)
  - POST ABORTION HAEMORRHAGE [None]
